FAERS Safety Report 19727823 (Version 1)
Quarter: 2021Q3

REPORT INFORMATION
  Report Type: Spontaneous
  Country: US (occurrence: US)
  Receive Date: 20210820
  Receipt Date: 20210820
  Transmission Date: 20211014
  Serious: Yes (Hospitalization)
  Sender: FDA-Public Use
  Company Number: None

PATIENT
  Age: 74 Year
  Sex: Female

DRUGS (16)
  1. NOVOLOG [Concomitant]
     Active Substance: INSULIN ASPART
  2. VITAMIN B12 [Concomitant]
     Active Substance: CYANOCOBALAMIN
  3. DILTIAZEM 240MG CD [Concomitant]
  4. VITAMIN D [Concomitant]
     Active Substance: VITAMIN D NOS
  5. IRON TABLETS [Concomitant]
  6. OMEPRAZOLE 40MG [Concomitant]
     Active Substance: OMEPRAZOLE
  7. VALSARTAN 80MG [Concomitant]
     Active Substance: VALSARTAN
  8. LEVEMIR FLEX TOUCH PEN [Concomitant]
  9. FOLIC ACID 1MG [Concomitant]
     Active Substance: FOLIC ACID
  10. MAGNESIUM 400MG [Concomitant]
     Active Substance: MAGNESIUM
  11. LOKELMA [Suspect]
     Active Substance: SODIUM ZIRCONIUM CYCLOSILICATE
     Indication: HYPERKALAEMIA
     Dosage: ?          OTHER FREQUENCY:EVERY OTHER DAY;?
     Route: 048
     Dates: start: 20210812, end: 20210813
  12. FUROSEMIDE 20MG [Concomitant]
     Active Substance: FUROSEMIDE
  13. ELIQUIS [Concomitant]
     Active Substance: APIXABAN
  14. LOVASTATIN 20MG [Concomitant]
  15. ASPIRIN 81MG [Concomitant]
     Active Substance: ASPIRIN
  16. PREDNISONE 5MG [Concomitant]
     Active Substance: PREDNISONE

REACTIONS (2)
  - Peripheral swelling [None]
  - Dyspnoea [None]

NARRATIVE: CASE EVENT DATE: 20210414
